FAERS Safety Report 10504299 (Version 1)
Quarter: 2014Q4

REPORT INFORMATION
  Report Type: Spontaneous
  Country: US (occurrence: None)
  Receive Date: 20141007
  Receipt Date: 20141007
  Transmission Date: 20150528
  Serious: No
  Sender: FDA-Public Use
  Company Number: None

PATIENT
  Age: 36 Year
  Sex: Female
  Weight: 56.7 kg

DRUGS (3)
  1. AZITHROMYCIN [Suspect]
     Active Substance: AZITHROMYCIN ANHYDROUS
     Indication: OROPHARYNGEAL PAIN
     Dosage: 2 DAY 1 / 1 FOR 4 DAYS, 2 / 1, TAKEN BY MOUTH
     Route: 048
     Dates: start: 20141002, end: 20141003
  2. AZITHROMYCIN [Suspect]
     Active Substance: AZITHROMYCIN ANHYDROUS
     Indication: PYREXIA
     Dosage: 2 DAY 1 / 1 FOR 4 DAYS, 2 / 1, TAKEN BY MOUTH
     Route: 048
     Dates: start: 20141002, end: 20141003
  3. AZITHROMYCIN [Suspect]
     Active Substance: AZITHROMYCIN ANHYDROUS
     Indication: HEADACHE
     Dosage: 2 DAY 1 / 1 FOR 4 DAYS, 2 / 1, TAKEN BY MOUTH
     Route: 048
     Dates: start: 20141002, end: 20141003

REACTIONS (2)
  - Pruritus generalised [None]
  - Urticaria [None]

NARRATIVE: CASE EVENT DATE: 20141003
